FAERS Safety Report 6888821-7 (Version None)
Quarter: 2010Q3

REPORT INFORMATION
  Report Type: 
  Country: None (occurrence: None)
  Receive Date: 20100730
  Receipt Date: 20100726
  Transmission Date: 20110219
  Serious: Yes (Other)
  Sender: FDA-Public Use
  Company Number: PA-ABBOTT-10P-125-0659508-00

PATIENT
  Age: 68 Year
  Sex: Male

DRUGS (3)
  1. HUMIRA [Suspect]
     Indication: RHEUMATOID ARTHRITIS
     Dosage: 40MG/0.8ML
     Route: 058
     Dates: start: 20100208, end: 20100419
  2. AVANDIA [Concomitant]
     Indication: DIABETES MELLITUS
  3. ALLOPURINOL [Concomitant]
     Indication: HYPERURICAEMIA

REACTIONS (2)
  - HYPERKERATOSIS PALMARIS AND PLANTARIS [None]
  - RASH [None]
